FAERS Safety Report 5068230-6 (Version None)
Quarter: 2006Q3

REPORT INFORMATION
  Report Type: 
  Country: None (occurrence: None)
  Receive Date: 20060802
  Receipt Date: 20050613
  Transmission Date: 20061208
  Serious: No
  Sender: FDA-Public Use
  Company Number: US-BRISTOL-MYERS SQUIBB COMPANY-13001557

PATIENT
  Age: 75 Year
  Sex: Male

DRUGS (9)
  1. COUMADIN [Suspect]
     Indication: ATRIAL FIBRILLATION
     Dosage: 5 MG DAILY FOR TWO DAYS AND 2.5 MG DAILY FOR FIVE DAYS
  2. ATENOLOL [Concomitant]
  3. IMDUR [Concomitant]
  4. LOPERAMIDE [Concomitant]
  5. NIACIN [Concomitant]
  6. PREVACID [Concomitant]
  7. PRINZIDE [Concomitant]
  8. ROBINUL [Concomitant]
  9. SYNTHROID [Concomitant]

REACTIONS (1)
  - ERYTHEMA [None]
